FAERS Safety Report 17964660 (Version 1)
Quarter: 2020Q2

REPORT INFORMATION
  Report Type: Spontaneous
  Country: US (occurrence: US)
  Receive Date: 20200630
  Receipt Date: 20200630
  Transmission Date: 20200714
  Serious: No
  Sender: FDA-Public Use
  Company Number: US-PERRIGO-20US005233

PATIENT

DRUGS (1)
  1. PREVACID 24 HR [Suspect]
     Active Substance: LANSOPRAZOLE
     Indication: PAIN
     Dosage: UNKNOWN, UNKNOWN
     Route: 048
     Dates: start: 202003

REACTIONS (2)
  - Therapeutic product effect delayed [Unknown]
  - Off label use [Unknown]

NARRATIVE: CASE EVENT DATE: 202003
